FAERS Safety Report 7688822-5 (Version None)
Quarter: 2011Q3

REPORT INFORMATION
  Report Type: 
  Country: None (occurrence: None)
  Receive Date: 20110817
  Receipt Date: 20110805
  Transmission Date: 20111222
  Serious: Yes (Hospitalization, Other)
  Sender: FDA-Public Use
  Company Number: PHHY2011FR71107

PATIENT
  Sex: Female

DRUGS (4)
  1. AFINITOR [Suspect]
     Dosage: 5 MG, DAILY
     Dates: start: 20110803
  2. AFINITOR [Suspect]
     Indication: PANCREATIC NEUROENDOCRINE TUMOUR
     Dosage: 10 MG, DAILY
     Dates: start: 20110603
  3. AFINITOR [Suspect]
     Dosage: 5 MG, ONCE EVERY 2 DAYS
     Dates: start: 20110805
  4. AFINITOR [Suspect]
     Dosage: 5 MG, DAILY

REACTIONS (7)
  - OSTEONECROSIS [None]
  - HAEMATOTOXICITY [None]
  - OSTEOARTHRITIS [None]
  - JOINT SWELLING [None]
  - BURSITIS [None]
  - FEBRILE BONE MARROW APLASIA [None]
  - NEUTROPHIL COUNT DECREASED [None]
